FAERS Safety Report 5203823-4 (Version None)
Quarter: 2007Q1

REPORT INFORMATION
  Report Type: 
  Country: None (occurrence: None)
  Receive Date: 20070109
  Receipt Date: 20070109
  Transmission Date: 20070707
  Serious: No
  Sender: FDA-Public Use
  Company Number: None

PATIENT

DRUGS (2)
  1. BETAMETHASONE SODIUM PHOSPHATE AND BETAMETHASONE ACETATE [Suspect]
     Dosage: 1 CC ONE DOSE IM
     Route: 030
     Dates: start: 20061205
  2. BETAMETHASONE SODIUM PHOSPHATE AND BETAMETHASONE ACETATE [Suspect]
     Dosage: 1 CC ONE DOSE IM
     Route: 030
     Dates: start: 20061206

REACTIONS (5)
  - ARTHRALGIA [None]
  - INJECTION SITE ERYTHEMA [None]
  - INJECTION SITE MASS [None]
  - INJECTION SITE OEDEMA [None]
  - PAIN IN EXTREMITY [None]
